FAERS Safety Report 5073337-3 (Version None)
Quarter: 2006Q3

REPORT INFORMATION
  Report Type: 
  Country: None (occurrence: None)
  Receive Date: 20060717
  Receipt Date: 20060206
  Transmission Date: 20061208
  Serious: No
  Sender: FDA-Public Use
  Company Number: 2006000286

PATIENT
  Age: 47 Year
  Sex: Female

DRUGS (3)
  1. TARCEVA [Suspect]
     Indication: NON-SMALL CELL LUNG CANCER
     Dosage: 150 MG (QD), ORAL
     Route: 048
     Dates: start: 20051020
  2. WELCHOL [Concomitant]
  3. KEPPRA [Concomitant]

REACTIONS (5)
  - ACNE [None]
  - DERMATITIS ACNEIFORM [None]
  - DRY SKIN [None]
  - EYE SWELLING [None]
  - RASH [None]
